FAERS Safety Report 13040883 (Version 1)
Quarter: 2016Q4

REPORT INFORMATION
  Report Type: Spontaneous
  Country: US (occurrence: US)
  Receive Date: 20161219
  Receipt Date: 20161219
  Transmission Date: 20170207
  Serious: No
  Sender: FDA-Public Use
  Company Number: US-PFIZER INC-2016573349

PATIENT
  Age: 77 Year
  Sex: Female

DRUGS (5)
  1. BIOCEF [Suspect]
     Active Substance: CEFOTAXIME SODIUM
     Dosage: UNK
  2. TASIGNA [Suspect]
     Active Substance: NILOTINIB
     Dosage: UNK
  3. IODINE. [Suspect]
     Active Substance: IODINE
     Dosage: UNK
  4. MORPHINE SULFATE. [Suspect]
     Active Substance: MORPHINE SULFATE
     Dosage: UNK
  5. HYPAQUE SODIUM [Suspect]
     Active Substance: DIATRIZOATE SODIUM
     Dosage: UNK

REACTIONS (1)
  - Drug hypersensitivity [Unknown]
